FAERS Safety Report 23651053 (Version 1)
Quarter: 2024Q1

REPORT INFORMATION
  Report Type: Spontaneous
  Country: PT (occurrence: PT)
  Receive Date: 20240320
  Receipt Date: 20240320
  Transmission Date: 20240410
  Serious: Yes (Other)
  Sender: FDA-Public Use
  Company Number: PT-BEH-2024169805

PATIENT
  Sex: Male

DRUGS (1)
  1. HUMAN RHO(D) IMMUNE GLOBULIN [Suspect]
     Active Substance: HUMAN RHO(D) IMMUNE GLOBULIN
     Indication: Product used for unknown indication
     Route: 064

REACTIONS (10)
  - Haemorrhagic stroke [Unknown]
  - Jaundice [Unknown]
  - Hyperbilirubinaemia [Unknown]
  - Ecchymosis [Unknown]
  - Cerebral haemorrhage neonatal [Unknown]
  - Haemorrhagic cerebral infarction [Unknown]
  - Brain compression [Unknown]
  - Cerebral ventricle dilatation [Unknown]
  - Neurological decompensation [Unknown]
  - Foetal exposure during pregnancy [Unknown]
